FAERS Safety Report 8932439 (Version 1)
Quarter: 2012Q4

REPORT INFORMATION
  Report Type: 
  Country: DE (occurrence: DE)
  Receive Date: 20121128
  Receipt Date: 20121128
  Transmission Date: 20130627
  Serious: Yes (Hospitalization, Other)
  Sender: FDA-Public Use
  Company Number: DE-ELI_LILLY_AND_COMPANY-DE201211004758

PATIENT
  Age: 68 Year
  Sex: Female

DRUGS (4)
  1. FORSTEO [Suspect]
     Indication: OSTEOPOROSIS
     Dosage: UNK, qd
     Route: 058
     Dates: start: 20120819
  2. NOVALGIN                           /06276704/ [Concomitant]
     Dosage: UNK, unknown
     Route: 065
  3. ANTIDEPRESSANTS [Concomitant]
     Dosage: UNK, unknown
     Route: 065
  4. ANTI-PARKINSON DRUGS [Concomitant]
     Dosage: UNK, unknown
     Route: 065

REACTIONS (4)
  - Thrombosis [Unknown]
  - Oedema peripheral [Unknown]
  - Feeling hot [Unknown]
  - Pain in extremity [Unknown]
